FAERS Safety Report 7914683-2 (Version None)
Quarter: 2011Q4

REPORT INFORMATION
  Report Type: 
  Country: None (occurrence: None)
  Receive Date: 20111110
  Receipt Date: 20111102
  Transmission Date: 20120403
  Serious: Yes (Life-Threatening)
  Sender: FDA-Public Use
  Company Number: 2011-FR-0035

PATIENT
  Age: 61 Year
  Sex: Female

DRUGS (10)
  1. NEURONTIN [Concomitant]
  2. TRANXENE [Suspect]
     Indication: ANXIETY
     Dosage: INCREASED FROM 60 MG TO 90 MG ORAL
     Route: 048
     Dates: end: 20110907
  3. TRILEPTAL [Concomitant]
  4. TRAMADOL HCL [Suspect]
     Indication: PAIN
     Dosage: 1 DOSAGE FORM X 1, 2 TIMES PER DAY, ORAL
     Route: 048
     Dates: end: 20110907
  5. LIORESAL [Concomitant]
  6. CHLORAZEPATE (CHLORAZEPATE) [Concomitant]
  7. FORLAX (POLYETHYLENE GLYCOL) [Concomitant]
  8. DEPAMIDE (VALPROMIDE) ) [Concomitant]
  9. CITALOPRAM HYDROBROMIDE [Concomitant]
  10. FENTANYL [Suspect]
     Indication: PAIN
     Dosage: 1 DOSAGE FORMX 1 PER DAY SUBLINGUAL
     Route: 060
     Dates: end: 20110926

REACTIONS (2)
  - RESPIRATORY DISTRESS [None]
  - OFF LABEL USE [None]
